FAERS Safety Report 14385678 (Version 1)
Quarter: 2018Q1

REPORT INFORMATION
  Report Type: Spontaneous
  Country: US (occurrence: US)
  Receive Date: 20180115
  Receipt Date: 20180115
  Transmission Date: 20180509
  Serious: Yes (Other)
  Sender: FDA-Public Use
  Company Number: US-SA-2017SA019332

PATIENT
  Age: 59 Year
  Weight: 73 kg

DRUGS (3)
  1. CARBOPLATIN. [Concomitant]
     Active Substance: CARBOPLATIN
  2. TAXOTERE [Suspect]
     Active Substance: DOCETAXEL
     Indication: BREAST CANCER FEMALE
     Route: 042
     Dates: start: 20120924, end: 20120924
  3. TAXOTERE [Suspect]
     Active Substance: DOCETAXEL
     Indication: BREAST CANCER FEMALE
     Route: 042
     Dates: start: 20130122, end: 20130122

REACTIONS (8)
  - Anxiety [Unknown]
  - Hair texture abnormal [Unknown]
  - Injury [Unknown]
  - Impaired work ability [Unknown]
  - Psychological trauma [Unknown]
  - Alopecia [Not Recovered/Not Resolved]
  - Emotional distress [Unknown]
  - Pain [Unknown]

NARRATIVE: CASE EVENT DATE: 201307
